FAERS Safety Report 18174339 (Version 1)
Quarter: 2020Q3

REPORT INFORMATION
  Report Type: Report from Study
  Country: BR (occurrence: BR)
  Receive Date: 20200820
  Receipt Date: 20200820
  Transmission Date: 20201103
  Serious: Yes (Other)
  Sender: FDA-Public Use
  Company Number: NVSC2020BR227878

PATIENT
  Sex: Female

DRUGS (1)
  1. RIBOCICLIB. [Suspect]
     Active Substance: RIBOCICLIB
     Indication: PRODUCT USED FOR UNKNOWN INDICATION
     Dosage: 2 YEARS AGO
     Route: 065

REACTIONS (4)
  - Abdominal lymphadenopathy [Unknown]
  - Metastases to liver [Unknown]
  - COVID-19 [Recovering/Resolving]
  - Ageusia [Unknown]
